FAERS Safety Report 21683674 (Version 1)
Quarter: 2022Q4

REPORT INFORMATION
  Report Type: Spontaneous
  Country: US (occurrence: None)
  Receive Date: 20221202
  Receipt Date: 20221202
  Transmission Date: 20230112
  Serious: Yes (Death)
  Sender: FDA-Public Use
  Company Number: None

PATIENT
  Age: 87 Year
  Sex: Male

DRUGS (15)
  1. ABIRATERONE [Suspect]
     Active Substance: ABIRATERONE
     Indication: Prostate cancer
     Dosage: 1000MG QD PO?
     Route: 048
     Dates: start: 20220929, end: 20221123
  2. ALLOPURINOL [Concomitant]
     Active Substance: ALLOPURINOL
  3. HYDROCHLOROTHIAZIDE [Concomitant]
     Active Substance: HYDROCHLOROTHIAZIDE
  4. IRON [Concomitant]
     Active Substance: IRON
  5. SODIUM BICARBONATE [Concomitant]
     Active Substance: SODIUM BICARBONATE
  6. TIMOLOL 0.5% GF OPTH SOLN [Concomitant]
  7. AMLODIPINE BESYLATE [Concomitant]
     Active Substance: AMLODIPINE BESYLATE
  8. ATORVASTATIN [Concomitant]
     Active Substance: ATORVASTATIN
  9. BETAMETHASONE DIP 0.05% OINT [Concomitant]
  10. BREO ELLIPTA [Concomitant]
     Active Substance: FLUTICASONE FUROATE\VILANTEROL TRIFENATATE
  11. LEVOTHYROXINE [Concomitant]
     Active Substance: LEVOTHYROXINE
  12. ONETOUCH DELICA PLUS LAN DEVICE [Concomitant]
  13. PANTOPRAZOLE [Concomitant]
     Active Substance: PANTOPRAZOLE
  14. PLAVIX [Concomitant]
     Active Substance: CLOPIDOGREL BISULFATE
  15. ONE A DAY MENS FORMULA [Concomitant]

REACTIONS (1)
  - Death [None]

NARRATIVE: CASE EVENT DATE: 20221123
